FAERS Safety Report 9718393 (Version 1)
Quarter: 2013Q4

REPORT INFORMATION
  Report Type: Not Available
  Country: US (occurrence: US)
  Receive Date: 20131125
  Receipt Date: 20131125
  Transmission Date: 20140711
  Serious: No
  Sender: FDA-Public Use
  Company Number: US-VIVUS-2013V1000594

PATIENT
  Age: 37 Year
  Sex: Female

DRUGS (2)
  1. QSYMIA 15MG/92MG [Suspect]
     Indication: WEIGHT DECREASED
     Route: 048
     Dates: start: 20130804
  2. ESTRADIOL [Concomitant]
     Indication: HORMONE REPLACEMENT THERAPY
     Route: 048
     Dates: start: 2013

REACTIONS (2)
  - Tongue disorder [Not Recovered/Not Resolved]
  - Dysgeusia [Not Recovered/Not Resolved]
